FAERS Safety Report 5882064-1 (Version None)
Quarter: 2008Q3

REPORT INFORMATION
  Report Type: 
  Country: None (occurrence: None)
  Receive Date: 20080912
  Receipt Date: 20080723
  Transmission Date: 20090109
  Serious: No
  Sender: FDA-Public Use
  Company Number: US-ABBOTT-08P-163-0465244-00

PATIENT
  Sex: Female
  Weight: 95.34 kg

DRUGS (10)
  1. HUMIRA [Suspect]
     Indication: PSORIASIS
     Route: 058
     Dates: start: 20080407, end: 20080502
  2. HUMIRA [Suspect]
     Indication: PSORIATIC ARTHROPATHY
     Route: 058
     Dates: start: 20080612, end: 20080627
  3. NABUMETONE [Concomitant]
     Indication: ANTIINFLAMMATORY THERAPY
  4. METHOTREXATE [Concomitant]
     Indication: ARTHRITIS
  5. FOLIC ACID [Concomitant]
     Indication: VITAMIN SUPPLEMENTATION
  6. ZIPRASIDONE HYDROCHLORIDE [Concomitant]
     Indication: BIPOLAR DISORDER
  7. PAROXETINE HCL [Concomitant]
     Indication: DEPRESSION
  8. ALPRAZOLAM [Concomitant]
     Indication: ANXIETY
  9. LOTREL [Concomitant]
     Indication: HYPERTENSION
  10. DOXYCYCLINE [Concomitant]
     Indication: INFECTION PROPHYLAXIS

REACTIONS (5)
  - ANXIETY [None]
  - BLOOD THYROID STIMULATING HORMONE INCREASED [None]
  - PHARYNGITIS STREPTOCOCCAL [None]
  - THYROID NEOPLASM [None]
  - TREMOR [None]
